FAERS Safety Report 8777965 (Version 1)
Quarter: 2012Q4

REPORT INFORMATION
  Report Type: 
  Country: US (occurrence: US)
  Receive Date: 20120912
  Receipt Date: 20120912
  Transmission Date: 20130627
  Serious: No
  Sender: FDA-Public Use
  Company Number: US-ASTRAZENECA-2012SE65136

PATIENT
  Sex: Female

DRUGS (2)
  1. ARIMIDEX [Suspect]
     Route: 048
  2. FASLODEX [Suspect]
     Indication: BREAST CANCER METASTATIC
     Route: 030
     Dates: start: 2012

REACTIONS (8)
  - Atrial fibrillation [Unknown]
  - Cough [Unknown]
  - Dysstasia [Unknown]
  - Malaise [Unknown]
  - Adverse event [Unknown]
  - Vertigo [Unknown]
  - Fatigue [Unknown]
  - Drug dose omission [Unknown]
